FAERS Safety Report 8551449-7 (Version None)
Quarter: 2012Q3

REPORT INFORMATION
  Report Type: 
  Country: None (occurrence: None)
  Receive Date: 20120730
  Receipt Date: 20120113
  Transmission Date: 20120928
  Serious: No
  Sender: FDA-Public Use
  Company Number: US-ALLERGAN-1200599US

PATIENT
  Sex: Male

DRUGS (1)
  1. LUMIGAN [Suspect]
     Indication: GLAUCOMA
     Dosage: 2 GTT, QHS
     Route: 047

REACTIONS (3)
  - EYE OEDEMA [None]
  - EYE IRRITATION [None]
  - ABNORMAL SENSATION IN EYE [None]
